FAERS Safety Report 5518854-4 (Version None)
Quarter: 2007Q4

REPORT INFORMATION
  Report Type: 
  Country: None (occurrence: None)
  Receive Date: 20071113
  Receipt Date: 20071026
  Transmission Date: 20080405
  Serious: Yes (Hospitalization)
  Sender: FDA-Public Use
  Company Number: 2005EU000628

PATIENT
  Age: 72 Year
  Sex: Male

DRUGS (9)
  1. TACROLIMUS [Suspect]
     Indication: RENAL TRANSPLANT
     Dosage: 2 MG, BID; ORAL
     Route: 048
     Dates: start: 20050108
  2. TACROLIMUS [Suspect]
     Indication: RENAL TRANSPLANT
     Dosage: 2 MG, BID; ORAL
     Route: 048
     Dates: start: 20050223
  3. MYCOPHENOLATE MOFETIL [Suspect]
     Indication: RENAL TRANSPLANT
     Dosage: 1500.00 MG,BID, ORAL
     Route: 048
     Dates: start: 20050108
  4. CORTICOSTEROIDS [Suspect]
     Indication: RENAL TRANSPLANT
     Dates: start: 20050101
  5. LOPRESSOR [Concomitant]
  6. LASIX-SLOW RELEASE  (FUROSEMIDE) [Concomitant]
  7. AMIODARONE HCL [Concomitant]
  8. RENAGEL [Concomitant]
  9. COLCHICUM JTL LIQ [Concomitant]

REACTIONS (16)
  - ABDOMINAL PAIN LOWER [None]
  - BACTERAEMIA [None]
  - BLOOD CREATININE INCREASED [None]
  - DIARRHOEA [None]
  - DRUG DOSE OMISSION [None]
  - DYSPNOEA [None]
  - HYDRONEPHROSIS [None]
  - ILIAC ARTERY STENOSIS [None]
  - KLEBSIELLA INFECTION [None]
  - NAUSEA [None]
  - PERIPHERAL ISCHAEMIA [None]
  - PNEUMONIA [None]
  - SCAN ABNORMAL [None]
  - STAPHYLOCOCCAL INFECTION [None]
  - VOMITING [None]
  - WOUND INFECTION [None]
